FAERS Safety Report 8086385-6 (Version None)
Quarter: 2012Q1

REPORT INFORMATION
  Report Type: 
  Country: None (occurrence: None)
  Receive Date: 20120128
  Receipt Date: 20110509
  Transmission Date: 20120608
  Serious: No
  Sender: FDA-Public Use
  Company Number: US-ABBOTT-11P-163-0724545-00

PATIENT
  Age: 33 Year
  Sex: Male

DRUGS (5)
  1. ASACOL [Concomitant]
     Indication: CROHN'S DISEASE
     Dosage: DAILY
     Route: 048
  2. HUMIRA [Suspect]
     Indication: CROHN'S DISEASE
     Dates: start: 20110429
  3. HUMIRA [Suspect]
     Indication: SPONDYLITIS
  4. METHOTREXATE [Concomitant]
     Indication: PRODUCT USED FOR UNKNOWN INDICATION
     Dosage: ONCE A WEEK
     Route: 050
  5. UNKNOWN ANTIBIOTICS [Concomitant]
     Indication: GASTROINTESTINAL INFECTION
     Dates: start: 20110101

REACTIONS (1)
  - INJECTION SITE PAIN [None]
